FAERS Safety Report 24249132 (Version 2)
Quarter: 2024Q3

REPORT INFORMATION
  Report Type: Spontaneous
  Country: US (occurrence: US)
  Receive Date: 20240826
  Receipt Date: 20240923
  Transmission Date: 20241016
  Serious: No
  Sender: BRISTOL MYERS SQUIBB
  Company Number: US-BRISTOL-MYERS SQUIBB COMPANY-2024-134990

PATIENT
  Age: 65 Year
  Sex: Female
  Weight: 60.33 kg

DRUGS (1)
  1. REVLIMID [Suspect]
     Active Substance: LENALIDOMIDE
     Indication: Plasma cell myeloma
     Route: 048
     Dates: start: 20210901

REACTIONS (6)
  - Back pain [Not Recovered/Not Resolved]
  - Off label use [Unknown]
  - Hangover [Recovering/Resolving]
  - Sluggishness [Recovering/Resolving]
  - Dysphonia [Recovering/Resolving]
  - Nasopharyngitis [Recovering/Resolving]
